FAERS Safety Report 19599399 (Version 16)
Quarter: 2023Q4

REPORT INFORMATION
  Report Type: Report from Study
  Country: CA (occurrence: CA)
  Receive Date: 20210722
  Receipt Date: 20231215
  Transmission Date: 20240109
  Serious: Yes (Other)
  Sender: FDA-Public Use
  Company Number: CA-TAKEDA-2021TUS045680

PATIENT
  Age: 61 Year
  Sex: Female

DRUGS (12)
  1. VEDOLIZUMAB [Suspect]
     Active Substance: VEDOLIZUMAB
     Indication: Crohn^s disease
     Dosage: 300 MILLIGRAM
     Route: 042
     Dates: start: 20210602
  2. VEDOLIZUMAB [Suspect]
     Active Substance: VEDOLIZUMAB
     Dosage: 300 MILLIGRAM
     Route: 042
  3. VEDOLIZUMAB [Suspect]
     Active Substance: VEDOLIZUMAB
     Dosage: 300 MILLIGRAM, Q4WEEKS
     Route: 042
     Dates: start: 20211209
  4. VEDOLIZUMAB [Suspect]
     Active Substance: VEDOLIZUMAB
     Dosage: 300 MILLIGRAM, Q4WEEKS
     Route: 042
  5. VEDOLIZUMAB [Suspect]
     Active Substance: VEDOLIZUMAB
     Dosage: 300 MILLIGRAM, Q4WEEKS
     Route: 042
  6. VEDOLIZUMAB [Suspect]
     Active Substance: VEDOLIZUMAB
     Dosage: 300 MILLIGRAM, Q4WEEKS
     Route: 042
  7. VEDOLIZUMAB [Suspect]
     Active Substance: VEDOLIZUMAB
     Dosage: 300 MILLIGRAM, Q4WEEKS
     Route: 042
  8. VEDOLIZUMAB [Suspect]
     Active Substance: VEDOLIZUMAB
     Dosage: 300 MILLIGRAM, Q4WEEKS
     Route: 042
  9. VEDOLIZUMAB [Suspect]
     Active Substance: VEDOLIZUMAB
     Dosage: 300 MILLIGRAM, Q4WEEKS
     Route: 042
  10. RIVA AMLODIPINE [Concomitant]
     Dosage: 5 MILLIGRAM, QD
  11. ESTRADIOL [Concomitant]
     Active Substance: ESTRADIOL
     Dosage: 2 MILLIGRAM, QD
  12. INDAPAMIDE [Concomitant]
     Active Substance: INDAPAMIDE
     Dosage: 1.25 MILLIGRAM, QD

REACTIONS (20)
  - Crohn^s disease [Not Recovered/Not Resolved]
  - Ulcer [Unknown]
  - Gastrointestinal pain [Unknown]
  - Faeces discoloured [Not Recovered/Not Resolved]
  - Stress [Unknown]
  - Urinary incontinence [Unknown]
  - Peripheral swelling [Unknown]
  - Temperature intolerance [Unknown]
  - Drug ineffective [Unknown]
  - Off label use [Unknown]
  - Heart rate increased [Unknown]
  - Dizziness [Unknown]
  - Abdominal pain [Unknown]
  - Hyperhidrosis [Unknown]
  - Chest pain [Unknown]
  - Blood pressure increased [Unknown]
  - Muscle spasms [Unknown]
  - Arthralgia [Unknown]
  - Pain in extremity [Unknown]
  - Nausea [Unknown]

NARRATIVE: CASE EVENT DATE: 20210907
